FAERS Safety Report 4807304-9 (Version None)
Quarter: 2005Q4

REPORT INFORMATION
  Report Type: 
  Country: None (occurrence: None)
  Receive Date: 20051024
  Receipt Date: 20050916
  Transmission Date: 20060501
  Serious: Yes (Other)
  Sender: FDA-Public Use
  Company Number: SE-MERCK-0510SWE00030

PATIENT
  Age: 62 Year
  Sex: Female

DRUGS (1)
  1. VIOXX [Suspect]
     Indication: MUSCULOSKELETAL PAIN
     Route: 048

REACTIONS (1)
  - CEREBROVASCULAR ACCIDENT [None]
